FAERS Safety Report 25433991 (Version 1)
Quarter: 2025Q2

REPORT INFORMATION
  Report Type: Spontaneous
  Country: US (occurrence: US)
  Receive Date: 20250613
  Receipt Date: 20250613
  Transmission Date: 20250716
  Serious: Yes (Death, Life-Threatening, Hospitalization)
  Sender: PFIZER
  Company Number: US-PFIZER INC-PV202500068427

PATIENT
  Age: 57 Year
  Sex: Male

DRUGS (1)
  1. FENTANYL CITRATE [Suspect]
     Active Substance: FENTANYL CITRATE
     Route: 042

REACTIONS (9)
  - Overdose [Fatal]
  - Cardiac failure [Fatal]
  - Hyporesponsive to stimuli [Unknown]
  - Hypotension [Unknown]
  - Cyanosis [Unknown]
  - Metabolic acidosis [Unknown]
  - Blood creatine phosphokinase increased [Unknown]
  - Renal impairment [Unknown]
  - Rhabdomyolysis [Unknown]
